FAERS Safety Report 8891454 (Version 2)
Quarter: 2013Q1

REPORT INFORMATION
  Report Type: Spontaneous
  Country: US (occurrence: None)
  Receive Date: 20121031
  Receipt Date: 20130103
  Transmission Date: 20140127
  Serious: Yes (Hospitalization, Other)
  Sender: FDA-Public Use
  Company Number: NSR_00704_2012

PATIENT
  Age: 79 Year
  Sex: Male
  Weight: 87.4 kg

DRUGS (13)
  1. METOCLOPRAMIDE [Suspect]
     Dosage: (1X/6 HOURS)
     Route: 042
     Dates: start: 20110216, end: 20110217
  2. MORPHINE SULFATE [Suspect]
     Dosage: Q1H, GIVEN IN POSTOPERATIVE RECOVERY
     Route: 042
     Dates: start: 20110216
  3. CARBIDOPA LEVODOPA [Concomitant]
  4. FUROSEMIDE [Concomitant]
  5. POLYETHYLENE GLYCOL [Concomitant]
  6. INSULIN HUMAN INJECTION, ISOPHANE [Concomitant]
  7. ONDANSETRON [Concomitant]
  8. NEOSTIGMINE METHYLSULFATE [Concomitant]
  9. GLYCOPYRROLATE/00196202/ [Concomitant]
  10. LISINOPRIL [Concomitant]
  11. ERTAPENEM [Concomitant]
  12. FAMOTIDINE [Concomitant]
  13. METOPROLOL TARTRATE [Concomitant]

REACTIONS (1)
  - Metabolic encephalopathy [None]
